FAERS Safety Report 25194145 (Version 1)
Quarter: 2025Q2

REPORT INFORMATION
  Report Type: Spontaneous
  Country: US (occurrence: US)
  Receive Date: 20250414
  Receipt Date: 20250414
  Transmission Date: 20250716
  Serious: No
  Sender: SANOFI AVENTIS
  Company Number: US-SA-2025SA104880

PATIENT
  Age: 61 Year
  Sex: Female

DRUGS (3)
  1. DUPIXENT [Suspect]
     Active Substance: DUPILUMAB
     Indication: Sinusitis
     Dosage: 300 MG, QOW
     Route: 058
  2. TAFINLAR [Concomitant]
     Active Substance: DABRAFENIB MESYLATE
     Indication: Malignant melanoma
  3. MEKINIST [Concomitant]
     Active Substance: TRAMETINIB DIMETHYL SULFOXIDE
     Indication: Malignant melanoma

REACTIONS (9)
  - Diarrhoea [Unknown]
  - Decreased appetite [Unknown]
  - Joint swelling [Unknown]
  - Gastrointestinal disorder [Unknown]
  - Sleep disorder due to a general medical condition [Unknown]
  - Eye swelling [Unknown]
  - Dry eye [Unknown]
  - Keratitis [Unknown]
  - Product use in unapproved indication [Unknown]
